FAERS Safety Report 4461880-7 (Version None)
Quarter: 2004Q3

REPORT INFORMATION
  Report Type: 
  Country: None (occurrence: None)
  Receive Date: 20040929
  Receipt Date: 20031110
  Transmission Date: 20050211
  Serious: No
  Sender: FDA-Public Use
  Company Number: US-GLAXOSMITHKLINE-A0439024A

PATIENT
  Age: 51 Year
  Sex: Female

DRUGS (9)
  1. SEREVENT [Suspect]
     Indication: ASTHMA
     Dosage: 1PUFF TWICE PER DAY
     Route: 055
     Dates: start: 20031028, end: 20031110
  2. THEOPHYLLINE [Concomitant]
  3. GLUCOPHAGE [Concomitant]
  4. PRAVACHOL [Concomitant]
  5. THYROID SUPPLEMENT [Concomitant]
  6. DETROL [Concomitant]
  7. CENESTIN [Concomitant]
  8. ENTEX CAP [Concomitant]
  9. ALLEGRA [Concomitant]

REACTIONS (3)
  - BRONCHITIS [None]
  - DIZZINESS [None]
  - DYSPNOEA [None]
